FAERS Safety Report 9680986 (Version 1)
Quarter: 2013Q4

REPORT INFORMATION
  Report Type: Spontaneous
  Country: US (occurrence: None)
  Receive Date: 20131108
  Receipt Date: 20131108
  Transmission Date: 20140711
  Serious: Yes (Life-Threatening)
  Sender: FDA-Public Use
  Company Number: None

PATIENT
  Age: 26 Year
  Sex: Female
  Weight: 64 kg

DRUGS (2)
  1. HALOTHANE [Suspect]
     Indication: ANAESTHESIA
     Dosage: VAPOR, PRN/AS NEEDED, RESPIRATORY
  2. EXELETON [Concomitant]

REACTIONS (4)
  - Hepatitis fulminant [None]
  - Encephalopathy [None]
  - Coma [None]
  - Accidental exposure to product [None]
